FAERS Safety Report 8592464-7 (Version None)
Quarter: 2012Q3

REPORT INFORMATION
  Report Type: 
  Country: None (occurrence: None)
  Receive Date: 20120814
  Receipt Date: 20120803
  Transmission Date: 20120928
  Serious: Yes (Other)
  Sender: FDA-Public Use
  Company Number: LB-PERRIGO-12LB006690

PATIENT
  Age: 16 Year
  Sex: Female
  Weight: 58 kg

DRUGS (1)
  1. CLOBETASOL PROPIONATE [Suspect]
     Indication: NETHERTON'S SYNDROME
     Dosage: TWICE DAILY
     Route: 061

REACTIONS (4)
  - CUSHING'S SYNDROME [None]
  - HIRSUTISM [None]
  - DRUG INEFFECTIVE [None]
  - OEDEMA [None]
